FAERS Safety Report 14849441 (Version 1)
Quarter: 2018Q2

REPORT INFORMATION
  Report Type: Spontaneous
  Country: US (occurrence: US)
  Receive Date: 20180504
  Receipt Date: 20180504
  Transmission Date: 20180711
  Serious: No
  Sender: FDA-Public Use
  Company Number: US-TEVA-2018-US-887777

PATIENT
  Sex: Male

DRUGS (2)
  1. LOSARTAN. [Suspect]
     Active Substance: LOSARTAN
     Indication: BLOOD PRESSURE MEASUREMENT
     Dosage: 100 MILLIGRAM DAILY;
  2. LOSARTAN. [Suspect]
     Active Substance: LOSARTAN
     Dosage: 100 MILLIGRAM DAILY;

REACTIONS (2)
  - Incorrect dose administered [Unknown]
  - Feeling abnormal [Unknown]
